FAERS Safety Report 24884486 (Version 1)
Quarter: 2025Q1

REPORT INFORMATION
  Report Type: Spontaneous
  Country: PL (occurrence: PL)
  Receive Date: 20250124
  Receipt Date: 20250124
  Transmission Date: 20250409
  Serious: Yes (Hospitalization, Other)
  Sender: TEVA
  Company Number: PL-TEVA-VS-3289211

PATIENT
  Age: 70 Year
  Sex: Male

DRUGS (16)
  1. PANTOPRAZOLE [Suspect]
     Active Substance: PANTOPRAZOLE
     Indication: Product used for unknown indication
     Dosage: PANTOPRAZOLE SODIUM, THERAPY START AND END DATE: ASKU
     Route: 065
  2. RIVAROXABAN [Suspect]
     Active Substance: RIVAROXABAN
     Indication: Product used for unknown indication
     Dosage: THERAPY START AND END DATE ASKU, QD (STRENGTH 15 MG)
     Route: 065
  3. RIVAROXABAN [Suspect]
     Active Substance: RIVAROXABAN
     Indication: Product used for unknown indication
     Dosage: THERAPY START AND END DATE ASKU, QD (STRENGTH 20 MG)
     Route: 065
  4. RAMIPRIL [Suspect]
     Active Substance: RAMIPRIL
     Indication: Product used for unknown indication
     Dosage: THERAPY START AND END DATE: ASKU
     Route: 065
  5. RAMIPRIL [Suspect]
     Active Substance: RAMIPRIL
     Indication: Product used for unknown indication
     Dosage: THERAPY START AND END DATE ASKU
     Route: 065
  6. TORSEMIDE [Suspect]
     Active Substance: TORSEMIDE
     Indication: Product used for unknown indication
     Dosage: THERAPY START AND END DATE: ASKU
     Route: 065
  7. METOPROLOL [Suspect]
     Active Substance: METOPROLOL
     Indication: Product used for unknown indication
     Dosage: THERAPY START AND END DATE: ASKED BUT UNKNOWN, SALT NOT SPECIFIED
     Route: 065
  8. SACUBITRIL\VALSARTAN [Suspect]
     Active Substance: SACUBITRIL\VALSARTAN
     Indication: Product used for unknown indication
     Route: 065
  9. SACUBITRIL\VALSARTAN [Suspect]
     Active Substance: SACUBITRIL\VALSARTAN
     Indication: Product used for unknown indication
     Route: 065
  10. ALLOPURINOL [Suspect]
     Active Substance: ALLOPURINOL
     Indication: Product used for unknown indication
     Dosage: QD (100MG AS REPORTED), THERAPY START AND END DATE: ASKED BUT UNKNOWN
     Route: 065
  11. ALLOPURINOL [Suspect]
     Active Substance: ALLOPURINOL
     Indication: Product used for unknown indication
     Dosage: THERAPY START AND END DATE: ASKED BUT UNKNOWN, QD (300MG AS REPORTED)
     Route: 065
  12. EPLERENONE [Concomitant]
     Active Substance: EPLERENONE
     Indication: Product used for unknown indication
     Dosage: THERAPY START AND END DATE ASKED BUT UNKNOWN
     Route: 065
  13. FINASTERIDE [Concomitant]
     Active Substance: FINASTERIDE
     Indication: Product used for unknown indication
     Dosage: THERAPY START AND END DATE: ASKED BUT UNKNOWN
     Route: 065
  14. POTASSIUM CHLORIDE [Concomitant]
     Active Substance: POTASSIUM CHLORIDE
     Indication: Product used for unknown indication
     Dosage: THERAPY START AND END DATE: ASKED BUT UNKNOWN
     Route: 065
  15. DAPAGLIFLOZIN [Concomitant]
     Active Substance: DAPAGLIFLOZIN
     Indication: Product used for unknown indication
     Dosage: THERAPY START AND END DATE: ASKED BUT UNKNOWN
     Route: 065
  16. CARVEDILOL [Concomitant]
     Active Substance: CARVEDILOL
     Indication: Product used for unknown indication
     Dosage: THERAPY START AND END DATE: ASKED BUT UNKNOWN
     Route: 065

REACTIONS (9)
  - Urosepsis [Unknown]
  - Cardiac failure chronic [Unknown]
  - Renal atrophy [Unknown]
  - COVID-19 pneumonia [Unknown]
  - Hypertrophy [Unknown]
  - N-terminal prohormone brain natriuretic peptide abnormal [Unknown]
  - Dyspnoea exertional [Unknown]
  - Glomerular filtration rate abnormal [Unknown]
  - Blood pressure decreased [Unknown]
